FAERS Safety Report 9039349 (Version 1)
Quarter: 2013Q1

REPORT INFORMATION
  Report Type: Spontaneous
  Country: US (occurrence: US)
  Receive Date: 20130129
  Receipt Date: 20130129
  Transmission Date: 20140127
  Serious: No
  Sender: FDA-Public Use
  Company Number: US-ABBOTT-12P-163-0930069-00

PATIENT
  Age: 56 None
  Sex: Female
  Weight: 77.18 kg

DRUGS (17)
  1. HUMIRA 40 MG/0.8 ML PEN [Suspect]
     Indication: RHEUMATOID ARTHRITIS
     Dates: start: 20111104, end: 20120227
  2. HUMIRA 40 MG/0.8 ML PEN [Suspect]
     Dates: start: 20120305, end: 20120418
  3. PRASCION TOPICAL WASH [Concomitant]
     Indication: ACNE
  4. PROMISEB CREAM [Concomitant]
     Indication: SEBORRHOEIC DERMATITIS
  5. ALLEGRA-D [Concomitant]
     Indication: PRODUCT USED FOR UNKNOWN INDICATION
  6. CYMBALTA [Concomitant]
     Indication: DEPRESSION
  7. BUPROPRION HCL LX [Concomitant]
     Indication: DEPRESSION
  8. CLINAZEPAM [Concomitant]
     Indication: TENSION
     Dosage: 1-3 ONCE A DAY AS NEEDED
  9. CLINAZEPAM [Concomitant]
     Indication: ANXIETY
  10. METHOCARBAMOL [Concomitant]
     Indication: MUSCLE SPASMS
     Dosage: 2-3 THREE TIMES A DAY
  11. TRAZADONE [Concomitant]
     Indication: INSOMNIA
     Dosage: AT BEDTIME
  12. LEVOTHYROXINE [Concomitant]
     Indication: PRODUCT USED FOR UNKNOWN INDICATION
  13. BENAZEPRIL/HCTZ [Concomitant]
     Indication: BLOOD PRESSURE
     Dosage: 20/25
  14. VITAMIN D [Concomitant]
     Indication: PRODUCT USED FOR UNKNOWN INDICATION
  15. COVARYX [Concomitant]
     Indication: HORMONE REPLACEMENT THERAPY
     Dosage: 1.25/2.5 MG
     Route: 048
     Dates: start: 2000
  16. HYDROCOAPAP [Concomitant]
     Indication: PAIN
     Dosage: 10/325 MG 1-2 EVERY 6 HOURS PRN; TAKES 3-4 PER DAY
  17. EYE DROP VIT B COMPLEX, OMEPROZOLE [Concomitant]
     Indication: PRODUCT USED FOR UNKNOWN INDICATION

REACTIONS (16)
  - Arthralgia [Not Recovered/Not Resolved]
  - Joint swelling [Not Recovered/Not Resolved]
  - Headache [Not Recovered/Not Resolved]
  - Nausea [Not Recovered/Not Resolved]
  - Night sweats [Not Recovered/Not Resolved]
  - Headache [Not Recovered/Not Resolved]
  - Abdominal distension [Not Recovered/Not Resolved]
  - Vomiting [Not Recovered/Not Resolved]
  - Abdominal pain upper [Not Recovered/Not Resolved]
  - Back pain [Not Recovered/Not Resolved]
  - Pruritus [Not Recovered/Not Resolved]
  - Eye swelling [Not Recovered/Not Resolved]
  - Urinary incontinence [Not Recovered/Not Resolved]
  - Acne [Not Recovered/Not Resolved]
  - Dysuria [Not Recovered/Not Resolved]
  - Dysuria [Not Recovered/Not Resolved]
